FAERS Safety Report 11788749 (Version 1)
Quarter: 2015Q4

REPORT INFORMATION
  Report Type: Spontaneous
  Country: US (occurrence: None)
  Receive Date: 20151130
  Receipt Date: 20151130
  Transmission Date: 20160305
  Serious: Yes (Other)
  Sender: FDA-Public Use
  Company Number: None

PATIENT
  Age: 48 Year
  Sex: Male
  Weight: 104.33 kg

DRUGS (3)
  1. METOPROLOL SUCCINATE ER 25MG ACTAVIS [Suspect]
     Active Substance: METOPROLOL SUCCINATE
     Indication: HEART RATE IRREGULAR
     Dosage: 1 PILL TWICE DAILY TAKEN BY MOUTH
     Route: 048
  2. CPAP [Concomitant]
     Active Substance: DEVICE
  3. MULTI VITAMIN [Concomitant]
     Active Substance: VITAMINS

REACTIONS (6)
  - Product quality issue [None]
  - Drug ineffective [None]
  - Supraventricular tachycardia [None]
  - Product substitution issue [None]
  - Tachycardia [None]
  - Ventricular extrasystoles [None]

NARRATIVE: CASE EVENT DATE: 20151117
